FAERS Safety Report 17638153 (Version 1)
Quarter: 2020Q2

REPORT INFORMATION
  Report Type: Spontaneous
  Country: DE (occurrence: DE)
  Receive Date: 20200407
  Receipt Date: 20200407
  Transmission Date: 20200713
  Serious: Yes (Other)
  Sender: FDA-Public Use
  Company Number: NVSC2020DE093628

PATIENT
  Age: 71 Year
  Sex: Female

DRUGS (2)
  1. QUETIAPIN - 1 A PHARMA 150 MG FILMTABLETTEN [Suspect]
     Active Substance: QUETIAPINE FUMARATE
     Indication: DEPRESSION
     Dosage: 150 MG (STARTED 2019 OR 2020)
     Route: 065
  2. TAVOR [Concomitant]
     Indication: PRODUCT USED FOR UNKNOWN INDICATION
     Route: 065

REACTIONS (3)
  - Herpes zoster [Unknown]
  - Cerebrovascular accident [Unknown]
  - Depression [Unknown]

NARRATIVE: CASE EVENT DATE: 201911
